FAERS Safety Report 6645557-5 (Version None)
Quarter: 2010Q1

REPORT INFORMATION
  Report Type: 
  Country: None (occurrence: None)
  Receive Date: 20100323
  Receipt Date: 20100310
  Transmission Date: 20100710
  Serious: No
  Sender: FDA-Public Use
  Company Number: 2009BI025895

PATIENT
  Age: 49 Year
  Sex: Female

DRUGS (2)
  1. TYSABRI [Suspect]
     Indication: MULTIPLE SCLEROSIS
     Route: 042
     Dates: start: 20090709, end: 20090811
  2. TYSABRI [Suspect]
     Route: 042
     Dates: start: 20050319, end: 20050813

REACTIONS (2)
  - HYPERSENSITIVITY [None]
  - PRURITUS ALLERGIC [None]
